FAERS Safety Report 5321775-3 (Version None)
Quarter: 2007Q2

REPORT INFORMATION
  Report Type: 
  Country: None (occurrence: None)
  Receive Date: 20070510
  Receipt Date: 20070502
  Transmission Date: 20071010
  Serious: Yes (Other)
  Sender: FDA-Public Use
  Company Number: US-PFIZER INC-2007033863

PATIENT
  Sex: Male

DRUGS (8)
  1. SILDENAFIL CITRATE [Suspect]
     Indication: ERECTILE DYSFUNCTION
  2. ARICEPT [Suspect]
     Indication: DEMENTIA ALZHEIMER'S TYPE
  3. DIAZEPAM [Concomitant]
  4. LIPITOR [Concomitant]
  5. PRAZOSIN HCL [Concomitant]
  6. HUMULIN N [Concomitant]
  7. ENALAPRIL [Concomitant]
  8. FINASTERIDE [Concomitant]

REACTIONS (2)
  - DEMENTIA ALZHEIMER'S TYPE [None]
  - DRUG INEFFECTIVE [None]
